FAERS Safety Report 18787934 (Version 1)
Quarter: 2021Q1

REPORT INFORMATION
  Report Type: Spontaneous
  Country: US (occurrence: US)
  Receive Date: 20210126
  Receipt Date: 20210126
  Transmission Date: 20210419
  Serious: Yes (Disabling)
  Sender: FDA-Public Use
  Company Number: None

PATIENT
  Age: 7 Year
  Sex: Male

DRUGS (1)
  1. MONTELUKAST [Suspect]
     Active Substance: MONTELUKAST SODIUM
     Indication: OBSTRUCTIVE AIRWAYS DISORDER
     Route: 048
     Dates: start: 20140321, end: 20200308

REACTIONS (7)
  - Stress [None]
  - Depression [None]
  - Anxiety [None]
  - Educational problem [None]
  - Memory impairment [None]
  - Personality change [None]
  - Disturbance in attention [None]

NARRATIVE: CASE EVENT DATE: 20190701
